FAERS Safety Report 8220862-X (Version None)
Quarter: 2012Q1

REPORT INFORMATION
  Report Type: 
  Country: None (occurrence: None)
  Receive Date: 20120320
  Receipt Date: 20120306
  Transmission Date: 20120608
  Serious: Yes (Other)
  Sender: FDA-Public Use
  Company Number: GB-MYLANLABS-2012S1005042

PATIENT
  Age: 24 Year
  Sex: Female

DRUGS (3)
  1. LEVETIRACETAM [Suspect]
     Indication: COMPLEX PARTIAL SEIZURES
  2. LEVETIRACETAM [Suspect]
  3. LAMOTRIGINE [Suspect]
     Indication: COMPLEX PARTIAL SEIZURES

REACTIONS (2)
  - CONVULSION [None]
  - DRUG LEVEL INCREASED [None]
